FAERS Safety Report 23665283 (Version 4)
Quarter: 2024Q2

REPORT INFORMATION
  Report Type: Report from Study
  Country: US (occurrence: US)
  Receive Date: 20240322
  Receipt Date: 20240514
  Transmission Date: 20240716
  Serious: Yes (Hospitalization, Other)
  Sender: FDA-Public Use
  Company Number: US-JAZZ PHARMACEUTICALS-2024-US-002296

PATIENT
  Age: 39 Year
  Sex: Female

DRUGS (6)
  1. SODIUM OXYBATE [Suspect]
     Active Substance: SODIUM OXYBATE
     Indication: Narcolepsy
     Dosage: UNK
  2. SODIUM OXYBATE [Suspect]
     Active Substance: SODIUM OXYBATE
     Indication: Cataplexy
     Dosage: 3 GRAM, BID
  3. ADDERALL [Suspect]
     Active Substance: AMPHETAMINE ASPARTATE\AMPHETAMINE SULFATE\DEXTROAMPHETAMINE SACCHARATE\DEXTROAMPHETAMINE SULFATE
     Indication: Product used for unknown indication
  4. IBUPROFEN IB [Concomitant]
     Active Substance: IBUPROFEN
     Indication: Product used for unknown indication
     Dosage: UNK, OTHER
     Dates: start: 20140930
  5. KAVA KAVA [PIPER METHYSTICUM] [Concomitant]
     Dosage: 0000
     Dates: start: 20240101
  6. CANNABIS SATIVA FLOWERING TOP [Concomitant]
     Active Substance: CANNABIS SATIVA FLOWERING TOP
     Indication: Anxiety
     Dosage: 0000, TINCTURE
     Dates: start: 20240401

REACTIONS (12)
  - Drug abuse [Unknown]
  - Hospitalisation [Unknown]
  - Victim of abuse [Unknown]
  - Disability [Unknown]
  - Tooth infection [Unknown]
  - Drug diversion [Unknown]
  - Confusional state [Unknown]
  - Palpitations [Unknown]
  - Intentional dose omission [Unknown]
  - Therapeutic response unexpected [Unknown]
  - Product administration interrupted [Unknown]
  - Product dose omission issue [Unknown]

NARRATIVE: CASE EVENT DATE: 20240503
